FAERS Safety Report 5838627-2 (Version None)
Quarter: 2008Q3

REPORT INFORMATION
  Report Type: 
  Country: None (occurrence: None)
  Receive Date: 20080808
  Receipt Date: 20080619
  Transmission Date: 20090109
  Serious: No
  Sender: FDA-Public Use
  Company Number: A0733899A

PATIENT
  Sex: Female

DRUGS (2)
  1. ALTABAX [Suspect]
     Indication: BITE
     Route: 061
  2. NO CONCURRENT MEDICATION [Concomitant]

REACTIONS (1)
  - BURNING SENSATION [None]
